FAERS Safety Report 7235649-4 (Version None)
Quarter: 2011Q1

REPORT INFORMATION
  Report Type: 
  Country: None (occurrence: None)
  Receive Date: 20110110
  Receipt Date: 20110103
  Transmission Date: 20110831
  Serious: Yes (Hospitalization)
  Sender: FDA-Public Use
  Company Number: DSA_44611_2011

PATIENT
  Sex: Female
  Weight: 46.7205 kg

DRUGS (5)
  1. BACLOFEN [Concomitant]
  2. XENAZINE [Suspect]
     Indication: DYSTONIA
     Dosage: (12.5 MG QD ORAL)
     Route: 048
     Dates: start: 20101211, end: 20101212
  3. NEXIUM [Concomitant]
  4. LITHIUM [Concomitant]
  5. INSULIN [Concomitant]

REACTIONS (2)
  - HOSTILITY [None]
  - AGGRESSION [None]
